FAERS Safety Report 20122790 (Version 1)
Quarter: 2021Q4

REPORT INFORMATION
  Report Type: Spontaneous
  Country: JP (occurrence: JP)
  Receive Date: 20211128
  Receipt Date: 20211128
  Transmission Date: 20220304
  Serious: Yes (Hospitalization)
  Sender: FDA-Public Use
  Company Number: JP-SUN PHARMACEUTICAL INDUSTRIES LTD-2021R1-318029

PATIENT
  Age: 85 Year
  Sex: Male
  Weight: 63.2 kg

DRUGS (23)
  1. ILUMYA [Suspect]
     Active Substance: TILDRAKIZUMAB-ASMN
     Indication: Psoriasis
     Dosage: UNK,100MG
     Route: 058
     Dates: start: 20210827, end: 20210924
  2. COSENTYX [Suspect]
     Active Substance: SECUKINUMAB
     Indication: Psoriasis
     Dosage: UNK,300MG
     Route: 058
     Dates: start: 20210924, end: 20210927
  3. ZALTOPROFEN [Suspect]
     Active Substance: ZALTOPROFEN
     Indication: Compression fracture
     Dosage: UNK
     Route: 048
     Dates: end: 20210924
  4. DUTASTERIDE [Concomitant]
     Active Substance: DUTASTERIDE
     Indication: Product used for unknown indication
     Dosage: 1CX1 AFTER BREAKFAST
     Route: 048
     Dates: start: 20150608, end: 20170612
  5. DUTASTERIDE [Concomitant]
     Active Substance: DUTASTERIDE
     Dosage: 1CX1 AFTER BREAKFAST
     Route: 048
     Dates: start: 20190729
  6. ALLOPURINOL [Concomitant]
     Active Substance: ALLOPURINOL
     Indication: Product used for unknown indication
     Dosage: 1CX1 AFTER BREAKFAST
     Route: 048
  7. AZILSARTAN KAMEDOXOMIL [Concomitant]
     Active Substance: AZILSARTAN KAMEDOXOMIL
     Indication: Product used for unknown indication
     Dosage: 1CX1 AFTER BREAKFAST
     Route: 048
     Dates: start: 20210806
  8. BILASTINE [Concomitant]
     Active Substance: BILASTINE
     Indication: Product used for unknown indication
     Dosage: 1TX1?VDS
     Route: 048
     Dates: start: 20210924
  9. BEOVA [Concomitant]
     Indication: Product used for unknown indication
     Dosage: 1CX1 AFTER BREAKFAST
     Route: 048
     Dates: start: 20210804
  10. CALONAL [Concomitant]
     Active Substance: ACETAMINOPHEN
     Indication: Product used for unknown indication
     Dosage: UNK, TID
     Route: 048
     Dates: start: 20210924
  11. CADUET NO.3 [Concomitant]
     Indication: Product used for unknown indication
     Dosage: 1CX1 AFTER BREAKFAST
     Route: 048
     Dates: start: 20180611
  12. BETAMETHASONE\CALCIPOTRIENE [Concomitant]
     Active Substance: BETAMETHASONE\CALCIPOTRIENE
     Indication: Product used for unknown indication
     Dosage: QD AT NIGHT
     Route: 065
     Dates: start: 20210813
  13. CLOBETASOL [Concomitant]
     Active Substance: CLOBETASOL
     Indication: Product used for unknown indication
     Dosage: BID OTHER THAN FACE
     Dates: start: 20210924
  14. GATIFLOXACIN HYDRATE [Concomitant]
     Indication: Product used for unknown indication
     Dosage: QID  LEFT EYE
     Route: 047
     Dates: start: 20210920, end: 20210927
  15. PREDNISOLONE VALERATE ACETATE [Concomitant]
     Active Substance: PREDNISOLONE VALERATE ACETATE
     Indication: Product used for unknown indication
     Dosage: UNK
     Route: 065
     Dates: start: 20210924
  16. NEXIUM [Concomitant]
     Active Substance: ESOMEPRAZOLE MAGNESIUM
     Indication: Product used for unknown indication
     Dosage: 1CX1 AFTER BREAKFAST
     Route: 048
     Dates: start: 20170920
  17. NEGMIN SUGAR [Concomitant]
     Indication: Product used for unknown indication
     Dosage: LEFT THIRD FINGE
     Dates: start: 20210924
  18. PRANOPROFEN [Concomitant]
     Active Substance: PRANOPROFEN
     Indication: Product used for unknown indication
     Dosage: TID?RIGHT EYE
     Route: 047
     Dates: start: 20210821
  19. PRANOPROFEN [Concomitant]
     Active Substance: PRANOPROFEN
     Dosage: UNK
     Route: 047
     Dates: start: 20210919
  20. RUPAFIN [Concomitant]
     Active Substance: RUPATADINE FUMARATE
     Indication: Product used for unknown indication
     Dosage: 2TX1 VDS
     Route: 048
     Dates: start: 20210813
  21. CYANOCOBALAMIN [Concomitant]
     Active Substance: CYANOCOBALAMIN
     Indication: Product used for unknown indication
     Dosage: QID  BOTH EYES
     Route: 047
     Dates: start: 20060817
  22. HERBALS [Concomitant]
     Active Substance: HERBALS
     Indication: Product used for unknown indication
     Dosage: PRN
     Route: 048
     Dates: start: 20161220
  23. URIEF OD [Concomitant]
     Indication: Product used for unknown indication
     Dosage: 2T2X B.I.D.
     Route: 048
     Dates: start: 20150608

REACTIONS (2)
  - Interstitial lung disease [Recovering/Resolving]
  - Condition aggravated [Unknown]

NARRATIVE: CASE EVENT DATE: 20210924
